FAERS Safety Report 4807391-8 (Version None)
Quarter: 2005Q4

REPORT INFORMATION
  Report Type: 
  Country: None (occurrence: None)
  Receive Date: 20051024
  Receipt Date: 20050818
  Transmission Date: 20060501
  Serious: Yes (Hospitalization, Other)
  Sender: FDA-Public Use
  Company Number: US-MERCK-0508USA03452

PATIENT
  Age: 67 Year
  Sex: Male
  Weight: 91 kg

DRUGS (8)
  1. VIOXX [Suspect]
     Indication: BACK PAIN
     Route: 048
     Dates: start: 19990101, end: 20040930
  2. VIOXX [Suspect]
     Indication: PAIN IN EXTREMITY
     Route: 048
     Dates: start: 19990101, end: 20040930
  3. NAPROXEN [Concomitant]
     Indication: PAIN
     Route: 065
     Dates: start: 19800101
  4. COLCHICINE [Concomitant]
     Indication: GOUT
     Route: 065
  5. ALLOPURINOL [Concomitant]
     Indication: GOUT
     Route: 065
  6. ALLEGRA [Concomitant]
     Indication: SEASONAL ALLERGY
     Route: 065
  7. PREVACID [Concomitant]
     Indication: GASTROOESOPHAGEAL REFLUX DISEASE
     Route: 065
  8. DARVOCET-N 100 [Concomitant]
     Indication: BACK PAIN
     Route: 065

REACTIONS (13)
  - ANXIETY [None]
  - ATRIOVENTRICULAR BLOCK FIRST DEGREE [None]
  - BLOOD HOMOCYSTEINE INCREASED [None]
  - CEREBROVASCULAR ACCIDENT [None]
  - CHEST DISCOMFORT [None]
  - CONFUSIONAL STATE [None]
  - CONVULSION [None]
  - DEPRESSION [None]
  - DYSARTHRIA [None]
  - FATIGUE [None]
  - HYPERTENSION [None]
  - PANIC DISORDER [None]
  - RENAL IMPAIRMENT [None]
